FAERS Safety Report 4950129-4 (Version None)
Quarter: 2006Q1

REPORT INFORMATION
  Report Type: 
  Country: None (occurrence: None)
  Receive Date: 20060316
  Receipt Date: 20060308
  Transmission Date: 20060701
  Serious: Yes (Other)
  Sender: FDA-Public Use
  Company Number: MX-2006-004237

PATIENT
  Age: 60 Year
  Sex: Female

DRUGS (1)
  1. ANGELIQ [Suspect]
     Indication: HORMONE REPLACEMENT THERAPY
     Dosage: 1 TAB(S), 1X/DAY ORAL
     Route: 048
     Dates: start: 20051201, end: 20060228

REACTIONS (1)
  - HYPOACUSIS [None]
